FAERS Safety Report 17884311 (Version 6)
Quarter: 2020Q3

REPORT INFORMATION
  Report Type: Report from Study
  Country: JP (occurrence: JP)
  Receive Date: 20200611
  Receipt Date: 20200722
  Transmission Date: 20201103
  Serious: Yes (Death, Life-Threatening, Hospitalization, Other)
  Sender: FDA-Public Use
  Company Number: JP-BRISTOL-MYERS SQUIBB COMPANY-BMS-2020-045887

PATIENT
  Age: 62 Year
  Sex: Male
  Weight: 70.9 kg

DRUGS (32)
  1. DAIPHEN [Concomitant]
     Active Substance: SULFAMETHOXAZOLE\TRIMETHOPRIM
     Indication: PROPHYLAXIS
     Dosage: 1 DF, EVERYDAY
     Route: 048
     Dates: start: 20200327, end: 20200624
  2. MAGNESIUM OXIDE. [Concomitant]
     Active Substance: MAGNESIUM OXIDE
     Indication: CONSTIPATION
     Dosage: 500 MG, Q8H
     Route: 048
     Dates: start: 20200326, end: 20200624
  3. SODIUM CHLORIDE. [Concomitant]
     Active Substance: SODIUM CHLORIDE
     Indication: HYPONATRAEMIA
     Dosage: 20 ML, EVERYDAY
     Route: 041
     Dates: start: 20200326, end: 20200624
  4. FEBURIC [Concomitant]
     Active Substance: FEBUXOSTAT
     Indication: PROPHYLAXIS
     Dosage: 40 MILLIGRAM, QD
     Route: 048
     Dates: start: 20200606, end: 20200624
  5. PICOSULFATE NA [Concomitant]
     Active Substance: SODIUM PICOSULFATE
     Indication: CONSTIPATION
     Dosage: UNK, PRN
     Route: 048
     Dates: end: 20200624
  6. DALTEPARIN NA [Concomitant]
     Active Substance: DALTEPARIN SODIUM
     Indication: PROPHYLAXIS
     Dosage: 5000 IU, EVERYDAY
     Route: 041
     Dates: start: 20200325, end: 20200624
  7. LASIX [Concomitant]
     Active Substance: FUROSEMIDE
     Indication: CARDIOVASCULAR EVENT PROPHYLAXIS
     Dosage: 20 MG, PRN
     Route: 041
     Dates: start: 20200525, end: 20200624
  8. ONOACT [Concomitant]
     Active Substance: LANDIOLOL HYDROCHLORIDE
     Indication: ATRIAL FIBRILLATION
     Dosage: 150 MILLIGRAM, QD
     Route: 041
     Dates: start: 20200605
  9. AMIODARONE [Suspect]
     Active Substance: AMIODARONE
     Indication: ATRIAL FIBRILLATION
     Dosage: 100 MILLIGRAM, Q12H
     Route: 048
     Dates: start: 20200609, end: 20200611
  10. LANSOPRAZOLE. [Concomitant]
     Active Substance: LANSOPRAZOLE
     Indication: GASTROOESOPHAGEAL REFLUX DISEASE
     Dosage: 15 MG, EVERYDAY
     Route: 048
     Dates: end: 20200624
  11. UREPEARL [Concomitant]
     Active Substance: UREA
     Indication: ECZEMA ASTEATOTIC
     Dosage: APPROPRIATE AMOUNT, PRN
     Route: 061
     Dates: end: 20200624
  12. DIQUAS [Concomitant]
     Active Substance: DIQUAFOSOL TETRASODIUM
     Indication: DRY EYE
     Dosage: APPROPRIATE AMOUNT, PRN
     Route: 047
     Dates: start: 20200601, end: 20200624
  13. SODIUM CHLORIDE. [Concomitant]
     Active Substance: SODIUM CHLORIDE
     Dosage: 10 MILLILITER, QD
     Route: 042
     Dates: start: 20200605
  14. ENALAPRIL MALEATE. [Concomitant]
     Active Substance: ENALAPRIL MALEATE
     Dosage: 5 MILLIGRAM, BID
     Route: 048
     Dates: start: 20200609
  15. HYDROCORTONE [HYDROCORTISONE] [Concomitant]
     Active Substance: HYDROCORTISONE
     Indication: PYREXIA
     Dosage: 100 MILLIGRAM, QD
     Route: 041
     Dates: start: 20200609, end: 20200624
  16. NIVOLUMAB [Suspect]
     Active Substance: NIVOLUMAB
     Indication: T-CELL LYMPHOMA
     Dosage: 240 MILLIGRAM, Q2WK
     Route: 041
     Dates: start: 20200525, end: 20200525
  17. LEVETIRACETAM. [Suspect]
     Active Substance: LEVETIRACETAM
     Indication: PROPHYLAXIS
     Dosage: UNK
     Route: 048
     Dates: start: 20200604, end: 20200605
  18. AMIODARONE [Suspect]
     Active Substance: AMIODARONE
     Indication: ARRHYTHMIA
     Dosage: LASTING, 750 MG, EVERYDAY
     Route: 041
     Dates: start: 20200610, end: 20200611
  19. URSODEOXYCHOLIC ACID [Concomitant]
     Active Substance: URSODIOL
     Indication: DRUG-INDUCED LIVER INJURY
     Dosage: 200 MG, Q8H
     Route: 048
     Dates: start: 20200323, end: 20200624
  20. KCL CORRECTIVE [Concomitant]
     Indication: HYPOKALAEMIA
     Dosage: 40 ML, EVERYDAY
     Route: 041
     Dates: start: 20200604, end: 20200624
  21. AMIODARONE [Suspect]
     Active Substance: AMIODARONE
     Indication: SINUS NODE DYSFUNCTION
  22. FLUCONAZOLE. [Concomitant]
     Active Substance: FLUCONAZOLE
     Indication: ANTIFUNGAL PROPHYLAXIS
     Dosage: 200 MG, EVERYDAY
     Route: 048
     Dates: end: 20200624
  23. HEPARINOID [Concomitant]
     Active Substance: CHONDROITIN SULFATE (BOVINE)
     Indication: ECZEMA ASTEATOTIC
     Dosage: APPROPRIATE AMOUNT, PRN
     Route: 061
     Dates: end: 20200624
  24. MOHRUS L [Concomitant]
     Active Substance: KETOPROFEN
     Indication: BACK PAIN
     Dosage: 1 DF, PRN
     Route: 062
     Dates: start: 20200322, end: 20200624
  25. ACELIO [Concomitant]
     Active Substance: ACETAMINOPHEN
     Indication: PYREXIA
     Dosage: 1000 MILLIGRAM, PRN
     Route: 041
     Dates: start: 20200322, end: 20200624
  26. ELIQUIS [Concomitant]
     Active Substance: APIXABAN
     Indication: ARRHYTHMIA PROPHYLAXIS
     Dosage: 5 MILLIGRAM, Q12H
     Route: 048
     Dates: start: 20200608, end: 20200611
  27. RECOMODULIN [Concomitant]
     Active Substance: THROMBOMODULIN ALFA
     Indication: DISSEMINATED INTRAVASCULAR COAGULATION
     Dosage: 25.6 KIU, EVERYDAY
     Route: 041
     Dates: start: 20200605, end: 20200624
  28. VALACICLOVIR [Concomitant]
     Active Substance: VALACYCLOVIR HYDROCHLORIDE
     Indication: ANTIVIRAL PROPHYLAXIS
     Dosage: 500 MILLIGRAM, Q56H
     Route: 048
     Dates: start: 20200407, end: 20200624
  29. KCL CORRECTIVE [Concomitant]
     Dosage: 30 MILLILITER, QD
     Route: 042
     Dates: start: 20200606
  30. HISHIPHAGEN C [Concomitant]
     Indication: DRUG-INDUCED LIVER INJURY
     Dosage: 40 MILLILITER, Q12H
     Route: 041
     Dates: start: 20200317, end: 20200624
  31. ENALAPRIL MALEATE. [Concomitant]
     Active Substance: ENALAPRIL MALEATE
     Indication: PROPHYLAXIS
     Dosage: 1.25 MG, Q12H
     Route: 048
     Dates: start: 20200609, end: 20200624
  32. SODIUM CHLORIDE. [Concomitant]
     Active Substance: SODIUM CHLORIDE
     Dosage: 50 MILLILITER, QD
     Route: 042
     Dates: start: 20200609

REACTIONS (4)
  - Encephalopathy [Recovered/Resolved]
  - Drug-induced liver injury [Recovering/Resolving]
  - Malignant neoplasm progression [Fatal]
  - Sinus node dysfunction [Not Recovered/Not Resolved]

NARRATIVE: CASE EVENT DATE: 20200604
